FAERS Safety Report 9107999 (Version 1)
Quarter: 2013Q1

REPORT INFORMATION
  Report Type: Spontaneous
  Country: US (occurrence: US)
  Receive Date: 20130221
  Receipt Date: 20130221
  Transmission Date: 20140127
  Serious: No
  Sender: FDA-Public Use
  Company Number: US-BIOGENIDEC-2013BI014376

PATIENT
  Age: 41 Year
  Sex: Male

DRUGS (3)
  1. TYSABRI [Suspect]
     Indication: MULTIPLE SCLEROSIS
     Route: 042
     Dates: start: 20091109
  2. NEURONTIN [Concomitant]
     Indication: PAIN IN EXTREMITY
  3. IBUPROFEN [Concomitant]
     Indication: PAIN IN EXTREMITY

REACTIONS (2)
  - Fall [Recovered/Resolved]
  - Arthralgia [Not Recovered/Not Resolved]
